FAERS Safety Report 9803237 (Version 1)
Quarter: 2014Q1

REPORT INFORMATION
  Report Type: Spontaneous
  Country: US (occurrence: None)
  Receive Date: 20140107
  Receipt Date: 20140107
  Transmission Date: 20141002
  Serious: Yes (Hospitalization)
  Sender: FDA-Public Use
  Company Number: None

PATIENT
  Age: 77 Year
  Sex: Female
  Weight: 68.04 kg

DRUGS (1)
  1. CIPRO [Suspect]
     Indication: DIARRHOEA
     Route: 048
     Dates: start: 20131127, end: 20131230

REACTIONS (12)
  - Tremor [None]
  - Asthenia [None]
  - Dizziness [None]
  - Hallucination [None]
  - Malaise [None]
  - Insomnia [None]
  - Decreased appetite [None]
  - Disturbance in attention [None]
  - Asthenia [None]
  - Depression [None]
  - Alanine aminotransferase increased [None]
  - Aspartate aminotransferase increased [None]
